FAERS Safety Report 9333616 (Version 1)
Quarter: 2013Q2

REPORT INFORMATION
  Report Type: Spontaneous
  Country: US (occurrence: US)
  Receive Date: 20130606
  Receipt Date: 20130606
  Transmission Date: 20140414
  Serious: Yes (Other)
  Sender: FDA-Public Use
  Company Number: US-AMGEN-USASP2012082088

PATIENT
  Age: 72 Year
  Sex: Female

DRUGS (7)
  1. PROLIA [Suspect]
     Indication: OSTEOPOROSIS POSTMENOPAUSAL
     Dosage: UNK
  2. ATIVAN [Concomitant]
     Dosage: UNK UNK, QID
  3. PROTONIX [Concomitant]
     Dosage: UNK UNK, QD
  4. SYNTHROID [Concomitant]
     Dosage: UNK UNK, QD
  5. LEVSIN [Concomitant]
     Dosage: UNK
  6. NEURONTIN [Concomitant]
     Dosage: 100 MG, TID
  7. BENADRYL                           /00000402/ [Concomitant]
     Dosage: UNK

REACTIONS (1)
  - Anaemia [Unknown]
